FAERS Safety Report 4861926-8 (Version None)
Quarter: 2005Q4

REPORT INFORMATION
  Report Type: 
  Country: None (occurrence: None)
  Receive Date: 20051129
  Receipt Date: 20051024
  Transmission Date: 20060501
  Serious: Yes (Hospitalization)
  Sender: FDA-Public Use
  Company Number: WAES 0510USA08691

PATIENT
  Age: 44 Year
  Sex: Female

DRUGS (3)
  1. ZETIA [Suspect]
     Dosage: 10 MG DAILY PO
     Route: 048
     Dates: end: 20051022
  2. ACIPHEX [Concomitant]
  3. ZESTRIL [Concomitant]

REACTIONS (1)
  - DIARRHOEA [None]
